FAERS Safety Report 6334731-3 (Version None)
Quarter: 2009Q3

REPORT INFORMATION
  Report Type: 
  Country: None (occurrence: None)
  Receive Date: 20090831
  Receipt Date: 20090818
  Transmission Date: 20100115
  Serious: Yes (Other)
  Sender: FDA-Public Use
  Company Number: CA-PFIZER INC-2009221530

PATIENT
  Age: 45 Year

DRUGS (2)
  1. CHAMPIX [Suspect]
     Indication: SMOKING CESSATION THERAPY
     Dosage: UNK
     Route: 048
     Dates: start: 20081001
  2. CHAMPIX [Suspect]
     Dosage: 1 UNK, 2X/DAY
     Route: 048
     Dates: end: 20080101

REACTIONS (3)
  - ABDOMINAL DISTENSION [None]
  - AGGRESSION [None]
  - SELF-INJURIOUS IDEATION [None]
